FAERS Safety Report 7234959-4 (Version None)
Quarter: 2011Q1

REPORT INFORMATION
  Report Type: 
  Country: None (occurrence: None)
  Receive Date: 20110120
  Receipt Date: 20110111
  Transmission Date: 20110831
  Serious: Yes (Hospitalization)
  Sender: FDA-Public Use
  Company Number: JP-ASTELLAS-2010JP007356

PATIENT
  Sex: Female

DRUGS (15)
  1. METHYLPREDNISOLONE [Concomitant]
     Dosage: 500 MG, UNKNOWN/D
     Route: 042
     Dates: start: 20070810, end: 20070813
  2. HUMULIN R [Concomitant]
     Dosage: 96 IU, UNKNOWN/D
     Route: 065
  3. TACROLIMUS [Suspect]
     Dosage: 2 MG, BID
     Route: 048
     Dates: start: 20070813, end: 20070813
  4. TACROLIMUS [Suspect]
     Dosage: 3 MG, UID/QD
     Route: 048
     Dates: start: 20070814, end: 20070814
  5. TACROLIMUS [Suspect]
     Indication: PANCREAS TRANSPLANT
     Dosage: 3 MG, UID/QD
     Route: 048
     Dates: start: 20070809, end: 20070811
  6. TACROLIMUS [Suspect]
     Indication: PROPHYLAXIS AGAINST TRANSPLANT REJECTION
     Dosage: 2 MG, UID/QD
     Route: 041
     Dates: start: 20070810, end: 20070810
  7. TACROLIMUS [Suspect]
     Dosage: 1 MG, UID/QD
     Route: 041
     Dates: start: 20070814, end: 20070815
  8. BASILIXIMAB [Concomitant]
     Dosage: 20 MG, UNKNOWN/D
     Route: 042
     Dates: start: 20070810, end: 20070810
  9. TACROLIMUS [Suspect]
     Dosage: 1 MG, UID/QD
     Route: 048
     Dates: start: 20070815, end: 20070816
  10. TACROLIMUS [Suspect]
     Dosage: 0.5 MG, BID
     Route: 041
     Dates: start: 20070812, end: 20070812
  11. CELLCEPT [Concomitant]
     Dosage: 2000 MG, UNKNOWN/D
     Route: 048
     Dates: start: 20070809, end: 20070816
  12. TACROLIMUS [Suspect]
     Dosage: 1 MG, UID/QD
     Route: 048
     Dates: start: 20070812, end: 20070812
  13. METHYLPREDNISOLONE [Concomitant]
     Dosage: 80 MG, UNKNOWN/D
     Route: 048
     Dates: start: 20070813, end: 20070816
  14. BASILIXIMAB [Concomitant]
     Dosage: 20 MG, UNKNOWN/D
     Route: 042
     Dates: start: 20070814, end: 20070814
  15. FLOMOXEF [Concomitant]
     Dosage: 2 G, UNKNOWN/D
     Route: 042
     Dates: start: 20070810, end: 20070815

REACTIONS (1)
  - GRAFT ISCHAEMIA [None]
